FAERS Safety Report 11767036 (Version 2)
Quarter: 2017Q1

REPORT INFORMATION
  Report Type: Spontaneous
  Country: US (occurrence: US)
  Receive Date: 20151123
  Receipt Date: 20170112
  Transmission Date: 20170428
  Serious: Yes (Hospitalization, Other)
  Sender: FDA-Public Use
  Company Number: US-ELI_LILLY_AND_COMPANY-US201511005824

PATIENT
  Age: 47 Year
  Sex: Female

DRUGS (4)
  1. CYMBALTA [Suspect]
     Active Substance: DULOXETINE HYDROCHLORIDE
     Dosage: 220 MG, UNKNOWN
     Route: 048
  2. CYMBALTA [Suspect]
     Active Substance: DULOXETINE HYDROCHLORIDE
     Dosage: 30 MG, QD
     Route: 048
  3. CYMBALTA [Suspect]
     Active Substance: DULOXETINE HYDROCHLORIDE
     Dosage: 30 MG, UNKNOWN
     Route: 048
     Dates: end: 20140606
  4. CYMBALTA [Suspect]
     Active Substance: DULOXETINE HYDROCHLORIDE
     Indication: PAIN
     Dosage: 30 MG, QD
     Route: 048

REACTIONS (22)
  - Paraesthesia [Unknown]
  - Sleep disorder [Unknown]
  - Nausea [Unknown]
  - Vertigo [Unknown]
  - Hallucination, auditory [Unknown]
  - Suicidal ideation [Unknown]
  - Tachyphrenia [Unknown]
  - Insomnia [Unknown]
  - Fatigue [Unknown]
  - Hyperhidrosis [Unknown]
  - Confusional state [Unknown]
  - Anxiety [Unknown]
  - Mood swings [Unknown]
  - Irritability [Unknown]
  - Agitation [Unknown]
  - Drug withdrawal syndrome [Unknown]
  - Affect lability [Unknown]
  - Headache [Unknown]
  - Dysphoria [Unknown]
  - Anger [Unknown]
  - Hypomania [Unknown]
  - Psychotic disorder [Unknown]

NARRATIVE: CASE EVENT DATE: 201406
